FAERS Safety Report 8145978-8 (Version None)
Quarter: 2012Q1

REPORT INFORMATION
  Report Type: 
  Country: None (occurrence: None)
  Receive Date: 20120217
  Receipt Date: 20110922
  Transmission Date: 20120608
  Serious: No
  Sender: FDA-Public Use
  Company Number: US-ALLERGAN-0917601US

PATIENT
  Age: 27 Year
  Sex: Female
  Weight: 81.633 kg

DRUGS (3)
  1. CLINDAMYCIN [Concomitant]
     Indication: ACNE CYSTIC
     Dosage: UNK
     Route: 061
  2. ST. JOHN'S WORT [Concomitant]
     Dosage: 3 TABS
  3. TAZORAC [Suspect]
     Indication: ACNE CYSTIC
     Dosage: UNK
     Route: 061
     Dates: start: 20070101, end: 20091201

REACTIONS (1)
  - PREGNANCY [None]
